FAERS Safety Report 6077376-5 (Version None)
Quarter: 2009Q1

REPORT INFORMATION
  Report Type: 
  Country: None (occurrence: None)
  Receive Date: 20090211
  Receipt Date: 20090202
  Transmission Date: 20090719
  Serious: Yes (Other)
  Sender: FDA-Public Use
  Company Number: DSA_33175_2009

PATIENT
  Sex: Male

DRUGS (1)
  1. LORAZEPAM [Suspect]
     Dosage: 2.5 MG 1X, 25 TABLETS WITHIN 24 HOURS ORAL
     Route: 048
     Dates: start: 20090101, end: 20090101

REACTIONS (3)
  - COUGH [None]
  - DRUG ABUSE [None]
  - INTENTIONAL OVERDOSE [None]
